FAERS Safety Report 8993402 (Version 1)
Quarter: 2013Q1

REPORT INFORMATION
  Report Type: Spontaneous
  Country: CA (occurrence: CA)
  Receive Date: 20130102
  Receipt Date: 20130102
  Transmission Date: 20140127
  Serious: Yes (Other)
  Sender: FDA-Public Use
  Company Number: CHPA2012CA025712

PATIENT
  Age: 76 Year
  Sex: Female

DRUGS (1)
  1. GAS-X [Suspect]
     Indication: FLATULENCE
     Dosage: UNK, UNK
     Route: 048
     Dates: start: 2005, end: 20121219

REACTIONS (4)
  - Coeliac disease [Recovered/Resolved]
  - Condition aggravated [Recovered/Resolved]
  - Diarrhoea [Recovered/Resolved]
  - Muscle spasms [Recovered/Resolved]
